FAERS Safety Report 25774406 (Version 1)
Quarter: 2025Q3

REPORT INFORMATION
  Report Type: Spontaneous
  Country: US (occurrence: None)
  Receive Date: 20250908
  Receipt Date: 20250908
  Transmission Date: 20251020
  Serious: Yes (Hospitalization)
  Sender: FDA-CTU
  Company Number: None

PATIENT
  Age: 49 Year
  Sex: Female

DRUGS (1)
  1. HUMIRA [Suspect]
     Active Substance: ADALIMUMAB
     Indication: Hidradenitis
     Dosage: INJECT 80MG SUBCUTANEOUSLY EVERY 2 WEEKS AS DIRECTED.
     Route: 058

REACTIONS (2)
  - Peripheral artery occlusion [None]
  - Nephrolithiasis [None]
